FAERS Safety Report 9248828 (Version 1)
Quarter: 2013Q2

REPORT INFORMATION
  Report Type: Spontaneous
  Country: US (occurrence: US)
  Receive Date: 20130423
  Receipt Date: 20130423
  Transmission Date: 20140414
  Serious: No
  Sender: FDA-Public Use
  Company Number: US-TEVA-399299USA

PATIENT
  Age: 55 Year
  Sex: Female
  Weight: 72.64 kg

DRUGS (10)
  1. QVAR [Suspect]
     Dates: start: 20110401, end: 20130417
  2. PRO-AIR [Concomitant]
     Indication: ASTHMA
  3. SINGULAIR [Concomitant]
     Indication: HYPERSENSITIVITY
  4. VASOTEC [Concomitant]
     Indication: HYPERTENSION
  5. PROVERA [Concomitant]
     Indication: HYPERPLASIA
  6. ASPIRIN [Concomitant]
  7. CLARITIN [Concomitant]
     Indication: HYPERSENSITIVITY
  8. NASALCROM [Concomitant]
     Indication: HYPERSENSITIVITY
  9. ALDACTONE [Concomitant]
     Indication: HYPERTENSION
  10. METROCREAM [Concomitant]
     Indication: ROSACEA

REACTIONS (2)
  - Cough [Recovered/Resolved]
  - Pruritus [Recovered/Resolved]
